FAERS Safety Report 11152980 (Version 1)
Quarter: 2015Q2

REPORT INFORMATION
  Report Type: Spontaneous
  Country: ES (occurrence: ES)
  Receive Date: 20150601
  Receipt Date: 20150601
  Transmission Date: 20150821
  Serious: Yes (Hospitalization, Other)
  Sender: FDA-Public Use
  Company Number: ES-GILEAD-2015-0154710

PATIENT
  Age: 55 Year
  Sex: Male

DRUGS (6)
  1. NEVIRAPINA [Concomitant]
     Indication: HIV INFECTION
     Dosage: 400 MG, QD
     Route: 048
     Dates: end: 20150213
  2. ENALAPRIL [Concomitant]
     Active Substance: ENALAPRIL
     Indication: HYPERTENSION
     Route: 048
     Dates: end: 20150213
  3. TRUVADA [Suspect]
     Active Substance: EMTRICITABINE\TENOFOVIR DISOPROXIL FUMARATE
     Indication: HIV INFECTION
     Dosage: 1 DF, QD
     Route: 048
     Dates: start: 2015, end: 20150213
  4. EMCONCOR [Concomitant]
     Active Substance: BISOPROLOL FUMARATE
     Route: 048
     Dates: end: 20150213
  5. ADIRO [Concomitant]
     Active Substance: ASPIRIN
     Route: 048
     Dates: end: 20150213
  6. LORMETAZEPAM [Concomitant]
     Active Substance: LORMETAZEPAM
     Dosage: 1 MG, QD
     Route: 048

REACTIONS (5)
  - Dyspnoea [Recovered/Resolved]
  - Fatigue [Recovered/Resolved]
  - Hyperlactacidaemia [Recovered/Resolved]
  - Congestive cardiomyopathy [Recovered/Resolved]
  - Palpitations [Recovered/Resolved]

NARRATIVE: CASE EVENT DATE: 20150213
